FAERS Safety Report 23487384 (Version 1)
Quarter: 2024Q1

REPORT INFORMATION
  Report Type: Spontaneous
  Country: US (occurrence: None)
  Receive Date: 20240205
  Receipt Date: 20240205
  Transmission Date: 20240410
  Serious: No
  Sender: FDA-Public Use
  Company Number: None

PATIENT
  Age: 68 Year
  Sex: Female
  Weight: 62.6 kg

DRUGS (1)
  1. RECLAST [Suspect]
     Active Substance: ZOLEDRONIC ACID
     Indication: Osteoporosis

REACTIONS (7)
  - Chest discomfort [None]
  - Anxiety [None]
  - Headache [None]
  - Dizziness [None]
  - Dizziness [None]
  - Respiration abnormal [None]
  - Infusion related reaction [None]

NARRATIVE: CASE EVENT DATE: 20240202
